FAERS Safety Report 5130571-1 (Version None)
Quarter: 2006Q4

REPORT INFORMATION
  Report Type: 
  Country: None (occurrence: None)
  Receive Date: 20061017
  Receipt Date: 20061017
  Transmission Date: 20070319
  Serious: No
  Sender: FDA-Public Use
  Company Number: None

PATIENT

DRUGS (1)
  1. ACTOS [Suspect]
     Dosage: 1 A DAY
     Dates: start: 20061008, end: 20061014

REACTIONS (1)
  - DYSPNOEA [None]
